FAERS Safety Report 6334976-2 (Version None)
Quarter: 2009Q3

REPORT INFORMATION
  Report Type: 
  Country: None (occurrence: None)
  Receive Date: 20090831
  Receipt Date: 20090826
  Transmission Date: 20100115
  Serious: Yes (Death, Hospitalization)
  Sender: FDA-Public Use
  Company Number: JP-ELI_LILLY_AND_COMPANY-JP200901000864

PATIENT
  Age: 75 Year
  Sex: Female
  Weight: 41 kg

DRUGS (4)
  1. GEMZAR [Suspect]
     Indication: METASTASES TO LUNG
     Dosage: 1000 MG, OTHER
     Route: 042
     Dates: start: 20070901, end: 20071101
  2. GEMZAR [Suspect]
     Route: 042
     Dates: start: 20080201, end: 20080101
  3. TS 1 /JPN/ [Concomitant]
     Indication: METASTASES TO LUNG
     Dosage: 80 MG, OTHER
     Route: 048
     Dates: start: 20070901, end: 20071101
  4. TS 1 /JPN/ [Concomitant]
     Route: 048
     Dates: start: 20080401, end: 20080101

REACTIONS (9)
  - ABDOMINAL PAIN [None]
  - DECREASED APPETITE [None]
  - DIARRHOEA [None]
  - HEPATIC FAILURE [None]
  - METASTASES TO LUNG [None]
  - METASTASES TO SKIN [None]
  - NAUSEA [None]
  - PORTAL VEIN THROMBOSIS [None]
  - STOMATITIS [None]
